FAERS Safety Report 7517635-X (Version None)
Quarter: 2011Q2

REPORT INFORMATION
  Report Type: 
  Country: None (occurrence: None)
  Receive Date: 20110601
  Receipt Date: 20110527
  Transmission Date: 20111010
  Serious: Yes (Hospitalization)
  Sender: FDA-Public Use
  Company Number: JP-SANOFI-AVENTIS-2011SA029484

PATIENT
  Age: 81 Year
  Sex: Male

DRUGS (2)
  1. HERBAL PREPARATION [Concomitant]
     Route: 048
     Dates: start: 20110314
  2. ALLEGRA [Suspect]
     Route: 048
     Dates: start: 20110314, end: 20110423

REACTIONS (1)
  - HEPATIC FUNCTION ABNORMAL [None]
